FAERS Safety Report 25637842 (Version 1)
Quarter: 2025Q3

REPORT INFORMATION
  Report Type: Spontaneous
  Country: US (occurrence: US)
  Receive Date: 20250804
  Receipt Date: 20250804
  Transmission Date: 20251021
  Serious: No
  Sender: AZURITY PHARMACEUTICALS
  Company Number: US-AZURITY PHARMACEUTICALS, INC.-AZR202411-001046

PATIENT
  Sex: Male

DRUGS (2)
  1. KATERZIA [Suspect]
     Active Substance: AMLODIPINE BENZOATE
     Indication: Wiskott-Aldrich syndrome
     Dosage: 1 MILLILITER, DAILY
     Route: 048
  2. KATERZIA [Suspect]
     Active Substance: AMLODIPINE BENZOATE
     Indication: Hypertension

REACTIONS (2)
  - Product prescribing issue [Unknown]
  - Product use in unapproved indication [Unknown]
